FAERS Safety Report 21758172 (Version 1)
Quarter: 2022Q4

REPORT INFORMATION
  Report Type: Spontaneous
  Country: SE (occurrence: SE)
  Receive Date: 20221221
  Receipt Date: 20221221
  Transmission Date: 20230112
  Serious: Yes (Other)
  Sender: FDA-Public Use
  Company Number: None

PATIENT
  Age: 26 Year
  Sex: Female

DRUGS (4)
  1. ADALIMUMAB [Suspect]
     Active Substance: ADALIMUMAB
     Indication: Psoriasis
     Dosage: 1 DOSAGE FORM, Q3WK (1 INJECTION EVERY 3 WEEK)
     Route: 058
     Dates: start: 20211216
  2. BUPROPION HYDROCHLORIDE [Concomitant]
     Active Substance: BUPROPION HYDROCHLORIDE
     Dosage: 150 MG 1X1
     Route: 048
     Dates: start: 20181216
  3. CHOLECALCIFEROL [Concomitant]
     Active Substance: CHOLECALCIFEROL
     Dosage: 2000 INTERNATIONAL UNITS 1X1
     Route: 048
     Dates: start: 20221013
  4. CONCERTA [Concomitant]
     Active Substance: METHYLPHENIDATE HYDROCHLORIDE
     Dosage: 18 MG 1X1-2
     Route: 048
     Dates: start: 20220926

REACTIONS (1)
  - Burnout syndrome [Recovering/Resolving]

NARRATIVE: CASE EVENT DATE: 20221110
